FAERS Safety Report 6961461-7 (Version None)
Quarter: 2010Q3

REPORT INFORMATION
  Report Type: 
  Country: None (occurrence: None)
  Receive Date: 20100901
  Receipt Date: 20100826
  Transmission Date: 20110219
  Serious: Yes (Hospitalization)
  Sender: FDA-Public Use
  Company Number: PHHY2010AU52812

PATIENT
  Sex: Male

DRUGS (8)
  1. CLOZARIL [Suspect]
     Indication: SCHIZOAFFECTIVE DISORDER
     Dosage: UNK
     Route: 048
     Dates: start: 20100630, end: 20100720
  2. ZUCLOPENTHIXOL HYDROCHLORIDE [Concomitant]
     Indication: SCHIZOAFFECTIVE DISORDER
     Dosage: 20 MG NOCTE
     Route: 048
  3. ACETAMINOPHEN [Concomitant]
     Indication: MALAISE
     Dosage: 01 G, QID
     Route: 048
  4. CLONAZEPAM [Concomitant]
     Indication: AGITATION
     Dosage: 1-2 MG Q2H
     Route: 048
  5. LORAZEPAM [Concomitant]
     Indication: AGITATION
     Dosage: 1-2 MG Q2H
     Route: 048
  6. BENZTROPINE MESYLATE [Concomitant]
     Dosage: 0.5 - 02 MG
     Route: 048
  7. ZUCLOPENTHIXOL [Concomitant]
     Indication: AGITATION
     Dosage: 10 - 20 MG Q2H
     Route: 048
  8. AMOXICILLIN AND CLAVULANATE POTASSIUM [Concomitant]
     Indication: MALAISE
     Dosage: 1 DF, BID
     Route: 048
     Dates: start: 20100715, end: 20100720

REACTIONS (12)
  - BODY TEMPERATURE INCREASED [None]
  - CHEST PAIN [None]
  - DIZZINESS [None]
  - DYSPNOEA [None]
  - FATIGUE [None]
  - INFLUENZA LIKE ILLNESS [None]
  - MYALGIA [None]
  - MYOCARDITIS [None]
  - PERICARDITIS [None]
  - SINUS TACHYCARDIA [None]
  - TROPONIN INCREASED [None]
  - VIRAL INFECTION [None]
